FAERS Safety Report 9252378 (Version 1)
Quarter: 2013Q1

REPORT INFORMATION
  Report Type: Spontaneous
  Country: US (occurrence: None)
  Receive Date: 20130305
  Receipt Date: 20130305
  Transmission Date: 20140127
  Serious: Yes (Other)
  Sender: FDA-Public Use
  Company Number: 163-21880-12092519

PATIENT
  Age: 61 Year
  Sex: Male

DRUGS (2)
  1. REVLIMID [Suspect]
     Indication: PLASMA CELL MYELOMA
     Dosage: 15MG, 21 IN 28 D, PO
     Route: 048
     Dates: start: 20090806
  2. VALTREX (VALACICLOVIR HYDROCHLORIDE) [Concomitant]

REACTIONS (2)
  - Herpes zoster [None]
  - Neuralgia [None]
